FAERS Safety Report 5224952-5 (Version None)
Quarter: 2007Q1

REPORT INFORMATION
  Report Type: 
  Country: None (occurrence: None)
  Receive Date: 20070126
  Receipt Date: 20070115
  Transmission Date: 20070707
  Serious: Yes (Other)
  Sender: FDA-Public Use
  Company Number: HQWYE733417JAN07

PATIENT
  Age: 35 Year
  Sex: Male

DRUGS (3)
  1. EFFEXOR [Suspect]
     Dosage: ^OVERDOSE AMOUNT 2250 MG^
     Route: 048
     Dates: start: 20040801, end: 20040801
  2. ALCOHOL (ETHANOL) [Suspect]
     Dosage: ^OVERDOSE AMOUNT UNKNOWN^
     Route: 048
     Dates: start: 20040801, end: 20040801
  3. ALPRAZOLAM [Suspect]
     Dosage: ^OVERDOSE AMOUNT 7.5 MG^
     Dates: start: 20040801, end: 20040801

REACTIONS (5)
  - ELECTROCARDIOGRAM ST SEGMENT ABNORMAL [None]
  - HYPOTENSION [None]
  - OVERDOSE [None]
  - SINUS TACHYCARDIA [None]
  - SOMNOLENCE [None]
